FAERS Safety Report 18495995 (Version 1)
Quarter: 2020Q4

REPORT INFORMATION
  Report Type: Spontaneous
  Country: CA (occurrence: CA)
  Receive Date: 20201112
  Receipt Date: 20201112
  Transmission Date: 20210114
  Serious: Yes (Hospitalization, Other)
  Sender: FDA-Public Use
  Company Number: CA-GLAXOSMITHKLINE-CA2020GSK224121

PATIENT
  Sex: Male

DRUGS (1)
  1. AVANDIA [Suspect]
     Active Substance: ROSIGLITAZONE MALEATE
     Indication: DIABETES MELLITUS
     Dosage: 4 MG, QD
     Route: 048
     Dates: start: 20040125, end: 20110630

REACTIONS (5)
  - Catheterisation cardiac [Unknown]
  - Coronary artery bypass [Unknown]
  - Cardiac disorder [Unknown]
  - Coronary artery disease [Unknown]
  - Myocardial ischaemia [Unknown]
